FAERS Safety Report 12267358 (Version 2)
Quarter: 2016Q2

REPORT INFORMATION
  Report Type: Spontaneous
  Country: DE (occurrence: DE)
  Receive Date: 20160414
  Receipt Date: 20160630
  Transmission Date: 20160815
  Serious: Yes (Death, Hospitalization)
  Sender: FDA-Public Use
  Company Number: DE-009507513-1604DEU006280

PATIENT
  Age: 79 Year
  Sex: Male

DRUGS (3)
  1. GRANISETRON [Concomitant]
     Active Substance: GRANISETRON
     Indication: PREMEDICATION
     Dosage: 1 MG, UNK
     Dates: start: 20160318
  2. FENISTIL [Concomitant]
     Active Substance: DIMETHINDENE
     Indication: PREMEDICATION
     Dosage: 4 MG, UNK
     Dates: start: 20160318
  3. KEYTRUDA [Suspect]
     Active Substance: PEMBROLIZUMAB
     Indication: METASTATIC OCULAR MELANOMA
     Dosage: 2 MG/KG, UNK
     Route: 042
     Dates: start: 20160318

REACTIONS (5)
  - Hypoglycaemia [Fatal]
  - Acute hepatic failure [Fatal]
  - Acidosis [Fatal]
  - General physical health deterioration [Fatal]
  - Malignant neoplasm progression [Fatal]

NARRATIVE: CASE EVENT DATE: 20160319
